FAERS Safety Report 18340722 (Version 1)
Quarter: 2020Q4

REPORT INFORMATION
  Report Type: Spontaneous
  Country: US (occurrence: US)
  Receive Date: 20201002
  Receipt Date: 20201002
  Transmission Date: 20210113
  Serious: No
  Sender: FDA-Public Use
  Company Number: US-GE HEALTHCARE LIFE SCIENCES-2020CSU002332

PATIENT
  Age: 75 Year
  Sex: Male

DRUGS (4)
  1. TECHNETIUM TC 99M [Concomitant]
     Active Substance: TECHNETIUM TC-99M
     Indication: CHEST PAIN
  2. TECHNETIUM TC 99M [Concomitant]
     Active Substance: TECHNETIUM TC-99M
     Indication: SCAN MYOCARDIAL PERFUSION
     Dosage: UNK, SINGLE
     Route: 042
     Dates: start: 20200522, end: 20200522
  3. MYOVIEW [Suspect]
     Active Substance: TECHNETIUM TC-99M TETROFOSMIN
     Indication: CHEST PAIN
  4. MYOVIEW [Suspect]
     Active Substance: TECHNETIUM TC-99M TETROFOSMIN
     Indication: SCAN MYOCARDIAL PERFUSION
     Dosage: 965.7 MBQ, (26.1 MCI) SINGLE
     Route: 042
     Dates: start: 20200522, end: 20200522

REACTIONS (2)
  - Drug ineffective [Recovered/Resolved]
  - No adverse event [Recovered/Resolved]

NARRATIVE: CASE EVENT DATE: 20200522
